FAERS Safety Report 9208962 (Version 5)
Quarter: 2014Q1

REPORT INFORMATION
  Report Type: Spontaneous
  Country: US (occurrence: US)
  Receive Date: 20130404
  Receipt Date: 20140319
  Transmission Date: 20141002
  Serious: Yes (Hospitalization, Other)
  Sender: FDA-Public Use
  Company Number: US-JNJFOC-20130401348

PATIENT
  Sex: Male
  Weight: 70.76 kg

DRUGS (5)
  1. EXTRA STRENGTH TYLENOL [Suspect]
     Indication: CHEST PAIN
     Route: 048
  2. EXTRA STRENGTH TYLENOL [Suspect]
     Indication: BACK PAIN
     Route: 048
  3. OXYCODONE/APAP [Suspect]
     Indication: CHEST PAIN
     Route: 065
  4. OXYCODONE/APAP [Suspect]
     Indication: BACK PAIN
     Route: 065
  5. ALCOHOL [Suspect]
     Indication: PRODUCT USED FOR UNKNOWN INDICATION
     Route: 048

REACTIONS (4)
  - Hepatitis toxic [Recovering/Resolving]
  - Acute hepatic failure [Recovering/Resolving]
  - Overdose [Recovering/Resolving]
  - Weight decreased [Unknown]
